FAERS Safety Report 5301769-4 (Version None)
Quarter: 2007Q2

REPORT INFORMATION
  Report Type: 
  Country: None (occurrence: None)
  Receive Date: 20070419
  Receipt Date: 20070411
  Transmission Date: 20071010
  Serious: Yes (Hospitalization, Other)
  Sender: FDA-Public Use
  Company Number: 2004UW25988

PATIENT
  Age: 64 Year
  Sex: Female

DRUGS (9)
  1. SEROQUEL [Suspect]
     Indication: AFFECTIVE DISORDER
     Dosage: 50 MG AT 7PM AND 150 MG AT 9PM
     Route: 048
     Dates: start: 20041207
  2. EFFEXOR [Concomitant]
     Route: 048
     Dates: end: 20060801
  3. CALCIUM [Concomitant]
  4. VITAMINS [Concomitant]
  5. MELLARIL [Concomitant]
  6. LARGACTIL [Concomitant]
  7. STELAZINE [Concomitant]
  8. PULMICORT [Concomitant]
     Indication: ASTHMA
     Dosage: 2 PUFFS
     Route: 055
  9. LOSEC [Concomitant]
     Indication: STOMACH DISCOMFORT

REACTIONS (12)
  - ASTHENIA [None]
  - BLOOD PRESSURE DECREASED [None]
  - BODY TEMPERATURE FLUCTUATION [None]
  - CHEST PAIN [None]
  - DEPRESSION [None]
  - EMOTIONAL DISORDER [None]
  - HYPERVIGILANCE [None]
  - INCREASED APPETITE [None]
  - INSOMNIA [None]
  - IRRITABILITY [None]
  - MENTAL DISORDER [None]
  - WEIGHT DECREASED [None]
